FAERS Safety Report 22766033 (Version 12)
Quarter: 2025Q1

REPORT INFORMATION
  Report Type: Spontaneous
  Country: US (occurrence: US)
  Receive Date: 20230731
  Receipt Date: 20250120
  Transmission Date: 20250408
  Serious: Yes (Disabling, Other)
  Sender: AMGEN
  Company Number: US-HORIZON THERAPEUTICS-HZN-2023-005635

PATIENT
  Age: 79 Year
  Sex: Male

DRUGS (42)
  1. TEPEZZA [Suspect]
     Active Substance: TEPROTUMUMAB-TRBW
     Indication: Endocrine ophthalmopathy
     Dosage: UNK UNK, Q3WK, (FIRST INFUSION)
     Route: 042
     Dates: start: 20210827
  2. TEPEZZA [Suspect]
     Active Substance: TEPROTUMUMAB-TRBW
     Indication: Graves^ disease
     Dosage: UNK UNK, Q3WK
     Route: 040
     Dates: start: 20211101
  3. TEPEZZA [Suspect]
     Active Substance: TEPROTUMUMAB-TRBW
     Dosage: UNK UNK, Q3WK
     Route: 042
     Dates: start: 20211106
  4. TEPEZZA [Suspect]
     Active Substance: TEPROTUMUMAB-TRBW
     Dosage: UNK UNK, Q3WK
     Route: 042
     Dates: start: 20211127
  5. TEPEZZA [Suspect]
     Active Substance: TEPROTUMUMAB-TRBW
     Dosage: UNK UNK, Q3WK
     Route: 042
     Dates: start: 20211218
  6. TEPEZZA [Suspect]
     Active Substance: TEPROTUMUMAB-TRBW
     Dosage: UNK UNK, Q3WK
     Route: 042
     Dates: start: 20220122
  7. TEPEZZA [Suspect]
     Active Substance: TEPROTUMUMAB-TRBW
     Dosage: UNK UNK, Q3WK, (LAST INFUSION)
     Route: 042
     Dates: start: 20220212, end: 20220212
  8. REPATHA [Suspect]
     Active Substance: EVOLOCUMAB
     Indication: Product used for unknown indication
     Route: 065
     Dates: start: 20230405
  9. MINERALS\VITAMINS [Concomitant]
     Active Substance: MINERALS\VITAMINS
     Route: 065
     Dates: start: 20190124
  10. CIALIS [Concomitant]
     Active Substance: TADALAFIL
     Dosage: 5 MILLIGRAM, QD
     Route: 048
     Dates: start: 20190124
  11. ZOCOR [Concomitant]
     Active Substance: SIMVASTATIN
     Route: 065
     Dates: start: 20190124
  12. SYNTHROID [Concomitant]
     Active Substance: LEVOTHYROXINE SODIUM
     Indication: Hypothyroidism
     Route: 065
     Dates: start: 20190124
  13. SYNTHROID [Concomitant]
     Active Substance: LEVOTHYROXINE SODIUM
     Dosage: 100 MICROGRAM, QD (FOR 6 DAYS)
  14. SYNTHROID [Concomitant]
     Active Substance: LEVOTHYROXINE SODIUM
     Dosage: QWK (THEN TAKE 1/2 TABLET)
  15. VITAMIN D3 [Concomitant]
     Active Substance: CHOLECALCIFEROL
     Dosage: UNK, QD (TAKE 1,000 UNITS)
     Route: 048
     Dates: start: 20190429
  16. VITAMIN E [Concomitant]
     Active Substance: .ALPHA.-TOCOPHEROL
     Dosage: UNK, QD (TAKE 180 UNITS)
     Route: 048
     Dates: start: 20190429
  17. EZETIMIBE [Concomitant]
     Active Substance: EZETIMIBE
     Dosage: 10 MILLIGRAM, QD
     Route: 048
     Dates: start: 20191106
  18. RAMIPRIL [Concomitant]
     Active Substance: RAMIPRIL
     Dosage: UNK, QD (2 CAPSULES AT NIGHT TIME)
     Route: 048
     Dates: start: 20191106
  19. VITAMIN B1 [Concomitant]
     Active Substance: THIAMINE HYDROCHLORIDE
     Route: 065
     Dates: start: 20191106
  20. VITAMIN B2 [Concomitant]
     Active Substance: RIBOFLAVIN
     Route: 065
     Dates: start: 20191106
  21. VITAMIN B3 [Concomitant]
     Active Substance: NIACIN
     Route: 065
     Dates: start: 20191106
  22. PANTOTHENIC ACID [Concomitant]
     Active Substance: PANTOTHENIC ACID
     Route: 065
     Dates: start: 20191106
  23. VITAMIN B6 [Concomitant]
     Active Substance: PYRIDOXINE HYDROCHLORIDE
     Route: 065
     Dates: start: 20191106
  24. LEVOTHYROXINE SODIUM [Concomitant]
     Active Substance: LEVOTHYROXINE SODIUM
     Route: 065
     Dates: start: 20200127
  25. XARELTO [Concomitant]
     Active Substance: RIVAROXABAN
     Dosage: 20 MILLIGRAM, QD
     Route: 048
     Dates: start: 20200127
  26. DORZOLAMIDE\TIMOLOL [Concomitant]
     Active Substance: DORZOLAMIDE\TIMOLOL
     Dosage: UNK, BID
     Route: 047
     Dates: start: 20211101
  27. LUMIGAN [Concomitant]
     Active Substance: BIMATOPROST
     Route: 047
     Dates: start: 20211101
  28. VITAMIN B12 [Concomitant]
     Active Substance: CYANOCOBALAMIN
     Dosage: 1000 MICROGRAM, QD
     Route: 048
  29. COENZYME Q10 [Concomitant]
     Active Substance: DIETARY SUPPLEMENT\UBIDECARENONE
     Dosage: 100 MILLIGRAM, QD (TAKE 200 MILLIGRAM)
     Route: 048
  30. MOVE FREE JOINT STRENGTHENER [Concomitant]
  31. CRESTOR [Concomitant]
     Active Substance: ROSUVASTATIN CALCIUM
     Dosage: 20 MILLIGRAM, QD
     Route: 048
     Dates: start: 20210713
  32. ADALAT CC [Concomitant]
     Active Substance: NIFEDIPINE
     Dosage: 30 MILLIGRAM, QD
     Route: 048
  33. GLUCOPHAGE [Concomitant]
     Active Substance: METFORMIN HYDROCHLORIDE
     Indication: Glucose tolerance impaired
     Dosage: 500 MILLIGRAM, QD
     Route: 048
     Dates: start: 20230317
  34. LASIX [Concomitant]
     Active Substance: FUROSEMIDE
     Dates: start: 20230308
  35. LEVOXYL [Concomitant]
     Active Substance: LEVOTHYROXINE SODIUM
     Indication: Hypothyroidism
     Dosage: 100 MICROGRAM, QD (FOR 6 DAYS)
     Route: 048
  36. LEVOXYL [Concomitant]
     Active Substance: LEVOTHYROXINE SODIUM
     Dosage: QWK (THEN TAKE 1/2 TABLET)
     Route: 048
  37. LEVOXYL [Concomitant]
     Active Substance: LEVOTHYROXINE SODIUM
     Dosage: 175 MICROGRAM, QD
     Route: 048
  38. BOTOX [Concomitant]
     Active Substance: ONABOTULINUMTOXINA
     Indication: Torticollis
     Dosage: 300 UNIT (100 UNITS/VIAL)
     Route: 030
  39. DONA [Concomitant]
     Active Substance: EUCALYPTUS OIL\MENTHOL
  40. ADEMETIONINE [Concomitant]
     Active Substance: ADEMETIONINE
  41. TYLENOL [Concomitant]
     Active Substance: ACETAMINOPHEN
  42. ZETIA [Concomitant]
     Active Substance: EZETIMIBE
     Dosage: 10 MILLIGRAM, QD
     Route: 048

REACTIONS (36)
  - Physical disability [Not Recovered/Not Resolved]
  - Disability [Not Recovered/Not Resolved]
  - Deafness neurosensory [Not Recovered/Not Resolved]
  - Endocrine ophthalmopathy [Not Recovered/Not Resolved]
  - Exophthalmos [Unknown]
  - Pain [Not Recovered/Not Resolved]
  - Injury [Not Recovered/Not Resolved]
  - Anxiety [Not Recovered/Not Resolved]
  - Discomfort [Unknown]
  - Impaired quality of life [Not Recovered/Not Resolved]
  - Emotional distress [Not Recovered/Not Resolved]
  - Economic problem [Not Recovered/Not Resolved]
  - Product quality issue [Unknown]
  - Inappropriate schedule of product administration [Unknown]
  - Head titubation [Unknown]
  - Diplopia [Unknown]
  - Hordeolum [Not Recovered/Not Resolved]
  - Nasopharyngitis [Unknown]
  - Balance disorder [Unknown]
  - Ecchymosis [Unknown]
  - Blood creatinine increased [Unknown]
  - Blood urea increased [Unknown]
  - Low density lipoprotein increased [Unknown]
  - Blood pressure systolic increased [Unknown]
  - Blood cholesterol increased [Unknown]
  - Mean cell volume increased [Unknown]
  - Mean cell haemoglobin concentration decreased [Unknown]
  - Vitamin B12 increased [Unknown]
  - Blood chloride increased [Unknown]
  - Carbon dioxide decreased [Unknown]
  - Very low density lipoprotein decreased [Unknown]
  - Glycosylated haemoglobin increased [Unknown]
  - Tinnitus [Not Recovered/Not Resolved]
  - Headache [Unknown]
  - Nausea [Unknown]
  - Cerumen removal [Unknown]

NARRATIVE: CASE EVENT DATE: 20210831
